FAERS Safety Report 5081974-5 (Version None)
Quarter: 2006Q3

REPORT INFORMATION
  Report Type: 
  Country: None (occurrence: None)
  Receive Date: 20060811
  Receipt Date: 20060509
  Transmission Date: 20061208
  Serious: Yes (Life-Threatening, Hospitalization, Other)
  Sender: FDA-Public Use
  Company Number: HQWYE948110OCT05

PATIENT
  Age: 34 Year
  Sex: Male

DRUGS (3)
  1. EFFEXOR [Suspect]
     Dosage: SEE IMAGE
  2. LIPITOR [Concomitant]
  3. LOSEC (OMEPRAZOLE) [Concomitant]

REACTIONS (7)
  - CONTRAST MEDIA REACTION [None]
  - CONVULSION [None]
  - DEHYDRATION [None]
  - HYPERTENSION [None]
  - HYPERTENSIVE ENCEPHALOPATHY [None]
  - RENAL FAILURE [None]
  - SECONDARY HYPERTENSION [None]
